FAERS Safety Report 8600611-3 (Version None)
Quarter: 2012Q3

REPORT INFORMATION
  Report Type: 
  Country: None (occurrence: None)
  Receive Date: 20120803
  Receipt Date: 20120725
  Transmission Date: 20120928
  Serious: Yes (Hospitalization)
  Sender: FDA-Public Use
  Company Number: GER/UKI/12/0025181

PATIENT
  Age: 63 Year
  Sex: Male
  Weight: 69.85 kg

DRUGS (2)
  1. LAMOTRIGINE [Suspect]
     Indication: CONVULSION
     Dosage: 75 MG, ORAL
     Route: 048
     Dates: start: 20110901
  2. ASPIRIN [Concomitant]

REACTIONS (1)
  - ATRIAL FIBRILLATION [None]
